FAERS Safety Report 10560584 (Version 6)
Quarter: 2015Q4

REPORT INFORMATION
  Report Type: Spontaneous
  Country: US (occurrence: US)
  Receive Date: 20141103
  Receipt Date: 20151016
  Transmission Date: 20160304
  Serious: Yes (Hospitalization)
  Sender: FDA-Public Use
  Company Number: US-ACTELION-A-NJ2014-106842

PATIENT
  Age: 67 Year
  Sex: Female

DRUGS (16)
  1. DAPSON [Concomitant]
     Active Substance: DAPSONE
  2. PAXIL [Concomitant]
     Active Substance: PAROXETINE HYDROCHLORIDE
  3. OPSUMIT [Suspect]
     Active Substance: MACITENTAN
     Dosage: 10 UNK, UNK
     Route: 048
     Dates: start: 20141223, end: 20150113
  4. PREDNISONE. [Concomitant]
     Active Substance: PREDNISONE
  5. SILDENAFIL. [Concomitant]
     Active Substance: SILDENAFIL
  6. ASPIRIN. [Concomitant]
     Active Substance: ASPIRIN
  7. COREG [Concomitant]
     Active Substance: CARVEDILOL
  8. SIMVASTIN [Concomitant]
     Active Substance: SIMVASTATIN
  9. OPSUMIT [Suspect]
     Active Substance: MACITENTAN
     Indication: PULMONARY HYPERTENSION
     Dosage: 10 MG
     Route: 048
     Dates: start: 20140924, end: 20141120
  10. GUAIFENESIN. [Concomitant]
     Active Substance: GUAIFENESIN
  11. NORVASC [Concomitant]
     Active Substance: AMLODIPINE BESYLATE
  12. MYCOPHENOLATE [Concomitant]
     Active Substance: MYCOPHENOLIC ACID
  13. NIACIN. [Concomitant]
     Active Substance: NIACIN
  14. SOTALOL. [Concomitant]
     Active Substance: SOTALOL
  15. TORSEMIDE. [Concomitant]
     Active Substance: TORSEMIDE
  16. PAROXETINE [Concomitant]
     Active Substance: PAROXETINE\PAROXETINE HYDROCHLORIDE

REACTIONS (7)
  - Swelling face [Not Recovered/Not Resolved]
  - Oedema [Recovered/Resolved]
  - Tachycardia [Not Recovered/Not Resolved]
  - Rales [Recovered/Resolved]
  - Dysphagia [Unknown]
  - Atrial flutter [Recovered/Resolved]
  - Jugular vein distension [Recovered/Resolved]

NARRATIVE: CASE EVENT DATE: 20141005
